FAERS Safety Report 8600388-1 (Version None)
Quarter: 2012Q3

REPORT INFORMATION
  Report Type: 
  Country: None (occurrence: None)
  Receive Date: 20120817
  Receipt Date: 20120815
  Transmission Date: 20120928
  Serious: No
  Sender: FDA-Public Use
  Company Number: US-PFIZER INC-2012200608

PATIENT
  Age: 71 Year
  Sex: Female
  Weight: 54.422 kg

DRUGS (2)
  1. NORVASC [Suspect]
     Dosage: 10 MG, DAILY
  2. NORVASC [Suspect]
     Indication: HYPERTENSION
     Dosage: 5 MG, UNK
     Dates: start: 19900101

REACTIONS (2)
  - BODY HEIGHT DECREASED [None]
  - WEIGHT INCREASED [None]
